FAERS Safety Report 10883120 (Version 3)
Quarter: 2015Q1

REPORT INFORMATION
  Report Type: Spontaneous
  Country: US (occurrence: US)
  Receive Date: 20150303
  Receipt Date: 20150323
  Transmission Date: 20150721
  Serious: Yes (Death, Hospitalization)
  Sender: FDA-Public Use
  Company Number: US-CELGENEUS-USA-2015025633

PATIENT
  Age: 63 Year
  Sex: Male

DRUGS (1)
  1. REVLIMID [Suspect]
     Active Substance: LENALIDOMIDE
     Indication: PLASMA CELL MYELOMA
     Dosage: 25 MILLIGRAM
     Route: 048
     Dates: start: 20141205, end: 20150311

REACTIONS (4)
  - Neutropenia [Unknown]
  - Plasma cell myeloma [Unknown]
  - Staphylococcal infection [Unknown]
  - Death [Fatal]

NARRATIVE: CASE EVENT DATE: 20150312
